FAERS Safety Report 5676550-7 (Version None)
Quarter: 2008Q1

REPORT INFORMATION
  Report Type: 
  Country: None (occurrence: None)
  Receive Date: 20080318
  Receipt Date: 20080313
  Transmission Date: 20080703
  Serious: Yes (Other)
  Sender: FDA-Public Use
  Company Number: E2020-02444-SPO-ES

PATIENT
  Age: 69 Year
  Sex: Male

DRUGS (2)
  1. ARICEPT [Suspect]
     Indication: DEMENTIA ALZHEIMER'S TYPE
     Dosage: 10 MG, 1 IN 1 D, ORAL : 5 MG, 1 IN 1 D, ORAL
     Route: 048
     Dates: start: 20070713, end: 20070801
  2. ARICEPT [Suspect]
     Indication: DEMENTIA ALZHEIMER'S TYPE
     Dosage: 10 MG, 1 IN 1 D, ORAL : 5 MG, 1 IN 1 D, ORAL
     Route: 048
     Dates: start: 20070801, end: 20071001

REACTIONS (5)
  - AGGRESSION [None]
  - DYSGEUSIA [None]
  - IRRITABILITY [None]
  - NIGHTMARE [None]
  - SELF-INJURIOUS IDEATION [None]
